FAERS Safety Report 7816874-8 (Version None)
Quarter: 2011Q4

REPORT INFORMATION
  Report Type: 
  Country: None (occurrence: None)
  Receive Date: 20111017
  Receipt Date: 20111007
  Transmission Date: 20120403
  Serious: Yes (Other)
  Sender: FDA-Public Use
  Company Number: US-SHIRE-ALL1-2011-03816

PATIENT
  Sex: Female

DRUGS (1)
  1. ADDERALL XR 10 [Suspect]
     Indication: ATTENTION DEFICIT/HYPERACTIVITY DISORDER
     Dosage: 5 MG, 1X/DAY:QD
     Route: 048
     Dates: start: 20070101, end: 20070101

REACTIONS (5)
  - COORDINATION ABNORMAL [None]
  - VISUAL IMPAIRMENT [None]
  - DIZZINESS [None]
  - ADVERSE EVENT [None]
  - AUTOIMMUNE THYROIDITIS [None]
